FAERS Safety Report 10502146 (Version 1)
Quarter: 2014Q3

REPORT INFORMATION
  Report Type: Spontaneous
  Country: US (occurrence: None)
  Receive Date: 20140815
  Receipt Date: 20140815
  Transmission Date: 20150326
  Serious: Yes (Hospitalization, Other)
  Sender: FDA-Public Use
  Company Number: ADR-2013-01111

PATIENT
  Age: 66 Year
  Sex: Female

DRUGS (1)
  1. BACLOFEN INTRATHECAL [Suspect]
     Active Substance: BACLOFEN
     Indication: MUSCLE SPASTICITY

REACTIONS (5)
  - Altered state of consciousness [None]
  - Mental status changes [None]
  - Drug withdrawal syndrome [None]
  - Confusional state [None]
  - Slow speech [None]

NARRATIVE: CASE EVENT DATE: 20130627
